FAERS Safety Report 17807850 (Version 17)
Quarter: 2020Q4

REPORT INFORMATION
  Report Type: Report from Study
  Country: FR (occurrence: FR)
  Receive Date: 20200520
  Receipt Date: 20201207
  Transmission Date: 20210113
  Serious: Yes (Hospitalization)
  Sender: FDA-Public Use
  Company Number: FR-EISAI MEDICAL RESEARCH-EC-2020-074806

PATIENT
  Age: 58 Year
  Sex: Male
  Weight: 65.2 kg

DRUGS (8)
  1. DUPHALAC [Concomitant]
     Active Substance: LACTULOSE
     Route: 048
     Dates: start: 202003, end: 20200511
  2. INNOHEP [Concomitant]
     Active Substance: TINZAPARIN SODIUM
     Route: 058
     Dates: start: 20200210, end: 20200511
  3. PEMBROLIZUMAB. [Suspect]
     Active Substance: PEMBROLIZUMAB
     Indication: TRANSITIONAL CELL CARCINOMA
     Route: 041
     Dates: start: 20200312, end: 20200402
  4. PEMBROLIZUMAB. [Suspect]
     Active Substance: PEMBROLIZUMAB
     Route: 041
     Dates: start: 20200423, end: 20200423
  5. LANSOYL [Concomitant]
     Active Substance: MINERAL OIL
     Route: 065
     Dates: start: 202003, end: 20200511
  6. LENVATINIB [Suspect]
     Active Substance: LENVATINIB
     Indication: TRANSITIONAL CELL CARCINOMA
     Route: 048
     Dates: start: 20200312
  7. PEMBROLIZUMAB. [Suspect]
     Active Substance: PEMBROLIZUMAB
     Route: 041
     Dates: start: 20200515
  8. TRAMADOL HYDROCHLORIDE. [Concomitant]
     Active Substance: TRAMADOL HYDROCHLORIDE
     Route: 048
     Dates: start: 20200207, end: 20200514

REACTIONS (1)
  - Colitis [Recovered/Resolved]

NARRATIVE: CASE EVENT DATE: 20200512
